FAERS Safety Report 25712816 (Version 1)
Quarter: 2025Q3

REPORT INFORMATION
  Report Type: Spontaneous
  Country: US (occurrence: US)
  Receive Date: 20250821
  Receipt Date: 20250821
  Transmission Date: 20251021
  Serious: Yes (Other)
  Sender: NOVO NORDISK
  Company Number: US-NOVOPROD-1500761

PATIENT
  Age: 67 Year

DRUGS (1)
  1. OZEMPIC [Suspect]
     Active Substance: SEMAGLUTIDE
     Indication: Type 2 diabetes mellitus
     Dosage: 2 MG, QW
     Dates: start: 2022

REACTIONS (2)
  - Cataract operation [Recovering/Resolving]
  - Cataract operation [Recovering/Resolving]

NARRATIVE: CASE EVENT DATE: 20250724
